FAERS Safety Report 11977129 (Version 1)
Quarter: 2016Q1

REPORT INFORMATION
  Report Type: Spontaneous
  Country: DE (occurrence: DE)
  Receive Date: 20160129
  Receipt Date: 20160129
  Transmission Date: 20160526
  Serious: Yes (Other)
  Sender: FDA-Public Use
  Company Number: DE-SA-2015SA210575

PATIENT
  Age: 38 Year
  Sex: Male
  Weight: 84 kg

DRUGS (7)
  1. PRALUENT [Suspect]
     Active Substance: ALIROCUMAB
     Indication: TYPE IIA HYPERLIPIDAEMIA
     Route: 058
     Dates: start: 20151110, end: 20151208
  2. VITAMIN D [Concomitant]
     Active Substance: CHOLECALCIFEROL
     Indication: OSTEOPOROSIS
  3. EFIENT [Concomitant]
     Active Substance: PRASUGREL HYDROCHLORIDE
     Indication: CORONARY ARTERY DISEASE
     Dosage: STRENGTH: 10 MG DAILY
     Route: 048
     Dates: start: 20150306
  4. ALIROCUMAB PREFILLED PEN [Concomitant]
     Active Substance: ALIROCUMAB
     Dates: start: 20151110, end: 20151208
  5. ASPIRIN. [Concomitant]
     Active Substance: ASPIRIN
     Indication: CORONARY ARTERY DISEASE
     Dosage: STRENGTH: 100 MG
     Route: 048
     Dates: start: 20150306
  6. OMEPRAZOLE. [Concomitant]
     Active Substance: OMEPRAZOLE
     Indication: PROPHYLAXIS
     Dosage: STRENGTH: 40 MG
     Route: 048
     Dates: start: 20150306
  7. OMACOR [Concomitant]
     Active Substance: OMEGA-3-ACID ETHYL ESTERS
     Indication: HYPERLIPIDAEMIA
     Dosage: STRENGTH: 1000 MG
     Route: 048
     Dates: start: 201505

REACTIONS (4)
  - Ophthalmic herpes zoster [Recovered/Resolved]
  - Herpes zoster [Not Recovered/Not Resolved]
  - Facial pain [Not Recovered/Not Resolved]
  - Trigeminal nerve disorder [Recovering/Resolving]

NARRATIVE: CASE EVENT DATE: 20151205
